FAERS Safety Report 5570126-8 (Version None)
Quarter: 2007Q4

REPORT INFORMATION
  Report Type: 
  Country: None (occurrence: None)
  Receive Date: 20071217
  Receipt Date: 20071203
  Transmission Date: 20080405
  Serious: Yes (Other)
  Sender: FDA-Public Use
  Company Number: 2007BI019059

PATIENT
  Age: 39 Year
  Sex: Male

DRUGS (1)
  1. MATALIZUMAB (NATALIZUMAB) [Suspect]
     Indication: MULTIPLE SCLEROSIS
     Dosage: 300 MG; QM; IV
     Route: 030
     Dates: start: 20070301, end: 20070620

REACTIONS (3)
  - ARTHRITIS [None]
  - BODY TEMPERATURE INCREASED [None]
  - SARCOIDOSIS [None]
